FAERS Safety Report 14647584 (Version 4)
Quarter: 2018Q2

REPORT INFORMATION
  Report Type: Spontaneous
  Country: BE (occurrence: BE)
  Receive Date: 20180316
  Receipt Date: 20180510
  Transmission Date: 20180711
  Serious: Yes (Death, Hospitalization, Other)
  Sender: FDA-Public Use
  Company Number: BE-WEST-WARD PHARMACEUTICALS CORP.-BE-H14001-18-01857

PATIENT
  Age: 81 Year
  Sex: Female

DRUGS (6)
  1. PACLITAXEL. [Suspect]
     Active Substance: PACLITAXEL
     Route: 042
     Dates: start: 20180327
  2. BEVACIZUMAB. [Suspect]
     Active Substance: BEVACIZUMAB
     Indication: OVARIAN CANCER
     Dosage: RECEIVED DOSE OF 756 (UNIT NOT REPORTED)
     Route: 042
     Dates: start: 20180123
  3. BEVACIZUMAB. [Suspect]
     Active Substance: BEVACIZUMAB
     Route: 042
     Dates: start: 20180306
  4. PACLITAXEL. [Suspect]
     Active Substance: PACLITAXEL
     Indication: OVARIAN CANCER
     Route: 042
     Dates: start: 20180123
  5. CARBOPLATIN. [Suspect]
     Active Substance: CARBOPLATIN
     Indication: OVARIAN CANCER
     Dosage: LAST DOSE 2 (UNIT NOT REPORTED)
     Route: 042
     Dates: start: 20180123
  6. CARBOPLATIN. [Suspect]
     Active Substance: CARBOPLATIN
     Route: 042
     Dates: start: 20180327

REACTIONS (15)
  - Hypertension [Not Recovered/Not Resolved]
  - Dysgeusia [Not Recovered/Not Resolved]
  - Small intestinal perforation [Fatal]
  - Vertigo [Not Recovered/Not Resolved]
  - Hypotension [Not Recovered/Not Resolved]
  - Epistaxis [Not Recovered/Not Resolved]
  - Dysuria [Recovered/Resolved]
  - Nausea [Not Recovered/Not Resolved]
  - Sinusitis [Recovered/Resolved]
  - Skin fissures [Not Recovered/Not Resolved]
  - Headache [Not Recovered/Not Resolved]
  - Abdominal pain [Not Recovered/Not Resolved]
  - Anaemia [Recovered/Resolved]
  - Constipation [Not Recovered/Not Resolved]
  - Neuropathy peripheral [Not Recovered/Not Resolved]

NARRATIVE: CASE EVENT DATE: 20180124
